FAERS Safety Report 25999026 (Version 2)
Quarter: 2025Q4

REPORT INFORMATION
  Report Type: Report from Study
  Country: BR (occurrence: BR)
  Receive Date: 20251105
  Receipt Date: 20251111
  Transmission Date: 20260118
  Serious: Yes (Hospitalization)
  Sender: SANOFI AVENTIS
  Company Number: BR-SA-SAC20210123000018

PATIENT
  Age: 21 Year
  Sex: Female
  Weight: 84 kg

DRUGS (2)
  1. DUPILUMAB [Suspect]
     Active Substance: DUPILUMAB
     Indication: Dermatitis atopic
     Dosage: 300 MG, QOW
     Route: 058
     Dates: start: 20201104
  2. DUPILUMAB [Suspect]
     Active Substance: DUPILUMAB
     Indication: Asthma

REACTIONS (15)
  - Colitis [Recovered/Resolved]
  - Urinary tract infection [Recovered/Resolved]
  - Abdominal pain upper [Recovered/Resolved]
  - Abdominal distension [Recovered/Resolved]
  - Eructation [Recovered/Resolved]
  - Injection site swelling [Recovered/Resolved]
  - Coronavirus infection [Recovered/Resolved]
  - Abdominal pain [Recovered/Resolved]
  - Asthma [Recovered/Resolved]
  - Dermatitis atopic [Recovered/Resolved]
  - Injection site injury [Unknown]
  - Wound [Unknown]
  - Gastrointestinal disorder [Unknown]
  - Accidental exposure to product [Unknown]
  - Exposure via skin contact [Unknown]

NARRATIVE: CASE EVENT DATE: 20200101
